FAERS Safety Report 15852062 (Version 2)
Quarter: 2019Q1

REPORT INFORMATION
  Report Type: Spontaneous
  Country: JP (occurrence: JP)
  Receive Date: 20190122
  Receipt Date: 20190205
  Transmission Date: 20190417
  Serious: Yes (Other)
  Sender: FDA-Public Use
  Company Number: JP-TEVA-2019-JP-1000863

PATIENT
  Age: 50 Year
  Sex: Male

DRUGS (5)
  1. METHYLPREDNISOLONE. [Suspect]
     Active Substance: METHYLPREDNISOLONE
     Indication: STEROID THERAPY
     Dosage: (IV DRIP); PULSE THERAPY
     Route: 041
     Dates: start: 201309
  2. CICLOSPORIN [Suspect]
     Active Substance: CYCLOSPORINE
     Route: 065
  3. PREDNISOLONE. [Suspect]
     Active Substance: PREDNISOLONE
     Route: 050
  4. CICLOSPORIN [Suspect]
     Active Substance: CYCLOSPORINE
     Indication: VOGT-KOYANAGI-HARADA SYNDROME
     Route: 065
  5. PREDNISOLONE. [Suspect]
     Active Substance: PREDNISOLONE
     Indication: STEROID THERAPY
     Dosage: 60 MILLIGRAM DAILY;
     Route: 050

REACTIONS (2)
  - Renal impairment [Recovered/Resolved]
  - Drug ineffective [Unknown]
